FAERS Safety Report 4978145-7 (Version None)
Quarter: 2006Q2

REPORT INFORMATION
  Report Type: 
  Country: None (occurrence: None)
  Receive Date: 20060417
  Receipt Date: 20060407
  Transmission Date: 20061013
  Serious: Yes (Hospitalization)
  Sender: FDA-Public Use
  Company Number: PERC20060022

PATIENT
  Age: 80 Year
  Sex: Male
  Weight: 72.5755 kg

DRUGS (8)
  1. PERCOCET [Suspect]
     Indication: ARTHRALGIA
     Dosage: 1 TAB QID PO
     Route: 048
     Dates: start: 20030101, end: 20060410
  2. PERCOCET [Suspect]
     Indication: BONE PAIN
     Dosage: 1 TAB QID PO
     Route: 048
     Dates: start: 20030101, end: 20060410
  3. PROCARDIA XL [Concomitant]
  4. XANAX [Concomitant]
  5. LASIX [Concomitant]
  6. RESTORIL [Concomitant]
  7. PAMELOR [Concomitant]
  8. NEURONTIN [Concomitant]

REACTIONS (8)
  - CONSTIPATION [None]
  - DRUG INEFFECTIVE [None]
  - GASTROINTESTINAL ULCER HAEMORRHAGE [None]
  - INSOMNIA [None]
  - ORAL INTAKE REDUCED [None]
  - PRURITUS [None]
  - RASH [None]
  - WRONG TECHNIQUE IN DRUG USAGE PROCESS [None]
